FAERS Safety Report 4514189-7 (Version None)
Quarter: 2004Q4

REPORT INFORMATION
  Report Type: 
  Country: None (occurrence: None)
  Receive Date: 20041129
  Receipt Date: 20041123
  Transmission Date: 20050328
  Serious: Yes (Hospitalization)
  Sender: FDA-Public Use
  Company Number: 04-11-1637

PATIENT
  Age: 54 Year
  Sex: Male

DRUGS (1)
  1. CLOZAPINE [Suspect]
     Indication: SCHIZOPHRENIA
     Dosage: 50-125 MG QD ORAL
     Route: 048
     Dates: start: 20020601, end: 20041001

REACTIONS (2)
  - DEHYDRATION [None]
  - WEIGHT DECREASED [None]
